FAERS Safety Report 8009647-7 (Version None)
Quarter: 2011Q4

REPORT INFORMATION
  Report Type: 
  Country: None (occurrence: None)
  Receive Date: 20111228
  Receipt Date: 20111220
  Transmission Date: 20120403
  Serious: Yes (Hospitalization)
  Sender: FDA-Public Use
  Company Number: US-BIOGENIDEC-2011BI048168

PATIENT
  Age: 53 Year
  Sex: Female

DRUGS (3)
  1. PILLS (NOS) [Concomitant]
     Indication: INSOMNIA
  2. AVONEX [Suspect]
     Route: 030
  3. AVONEX [Suspect]
     Indication: MULTIPLE SCLEROSIS
     Route: 030
     Dates: start: 20100801

REACTIONS (2)
  - MENTAL DISORDER [None]
  - OVERDOSE [None]
